FAERS Safety Report 18127593 (Version 7)
Quarter: 2021Q1

REPORT INFORMATION
  Report Type: Spontaneous
  Country: US (occurrence: US)
  Receive Date: 20200810
  Receipt Date: 20210106
  Transmission Date: 20210419
  Serious: No
  Sender: FDA-Public Use
  Company Number: US-BIOGEN-2020BI00827930

PATIENT
  Age: 42 Year
  Sex: Female

DRUGS (30)
  1. TECFIDERA [Suspect]
     Active Substance: DIMETHYL FUMARATE
     Route: 048
     Dates: start: 20200114
  2. TECFIDERA [Suspect]
     Active Substance: DIMETHYL FUMARATE
     Route: 048
     Dates: start: 20200115
  3. IBUPROFEN. [Concomitant]
     Active Substance: IBUPROFEN
     Route: 065
  4. CLONAZEPAM. [Concomitant]
     Active Substance: CLONAZEPAM
     Route: 065
  5. LAMICTAL [Concomitant]
     Active Substance: LAMOTRIGINE
     Route: 065
  6. LUNESTA [Concomitant]
     Active Substance: ESZOPICLONE
     Route: 065
  7. TECFIDERA [Suspect]
     Active Substance: DIMETHYL FUMARATE
     Route: 065
     Dates: start: 20160811
  8. LEVOTHYROXIN [Concomitant]
     Active Substance: LEVOTHYROXINE
     Route: 065
  9. CITALOPRAM [Concomitant]
     Active Substance: CITALOPRAM HYDROBROMIDE
     Route: 065
  10. PROCTOZONE HC [Concomitant]
     Active Substance: HYDROCORTISONE
     Route: 065
  11. EFFEXOR XR [Concomitant]
     Active Substance: VENLAFAXINE HYDROCHLORIDE
     Route: 065
  12. ROPINIROLE. [Concomitant]
     Active Substance: ROPINIROLE
     Route: 065
  13. HYDROCO/APAP [Concomitant]
     Active Substance: ACETAMINOPHEN\HYDROCODONE
     Route: 065
  14. EMGALITY [Concomitant]
     Active Substance: GALCANEZUMAB-GNLM
     Route: 065
  15. WELLBUTRIN [Concomitant]
     Active Substance: BUPROPION HYDROCHLORIDE
     Route: 065
  16. NORTRIPTYLINE [Concomitant]
     Active Substance: NORTRIPTYLINE
     Route: 065
  17. CEPHALEXIN. [Concomitant]
     Active Substance: CEPHALEXIN
     Route: 065
  18. GABAPENTIN. [Concomitant]
     Active Substance: GABAPENTIN
     Route: 065
  19. TEMAZEPAM. [Concomitant]
     Active Substance: TEMAZEPAM
     Route: 065
  20. RECLIPSEN [Concomitant]
     Active Substance: DESOGESTREL\ETHINYL ESTRADIOL
     Route: 065
  21. SEROQUEL [Concomitant]
     Active Substance: QUETIAPINE FUMARATE
     Route: 065
  22. COPAXONE [Concomitant]
     Active Substance: GLATIRAMER ACETATE
     Route: 065
  23. SYNTHROID [Concomitant]
     Active Substance: LEVOTHYROXINE SODIUM
     Route: 065
  24. LAMOTRIGINE. [Concomitant]
     Active Substance: LAMOTRIGINE
     Route: 065
  25. TOPIRAMATE. [Concomitant]
     Active Substance: TOPIRAMATE
     Route: 065
  26. ZYPREXA [Concomitant]
     Active Substance: OLANZAPINE
     Route: 065
  27. SUMATRIPTAN. [Concomitant]
     Active Substance: SUMATRIPTAN
     Route: 065
  28. TECFIDERA [Suspect]
     Active Substance: DIMETHYL FUMARATE
     Indication: MULTIPLE SCLEROSIS
     Route: 048
     Dates: start: 2013
  29. NADOLOL. [Concomitant]
     Active Substance: NADOLOL
     Route: 065
  30. BUT/APAP/CAF [Concomitant]
     Route: 065

REACTIONS (5)
  - Pruritus [Not Recovered/Not Resolved]
  - Flushing [Not Recovered/Not Resolved]
  - Feeling hot [Not Recovered/Not Resolved]
  - Multiple sclerosis relapse [Unknown]
  - Fall [Recovered/Resolved]

NARRATIVE: CASE EVENT DATE: 20191212
